FAERS Safety Report 23733074 (Version 1)
Quarter: 2024Q2

REPORT INFORMATION
  Report Type: Spontaneous
  Country: US (occurrence: US)
  Receive Date: 20240411
  Receipt Date: 20240411
  Transmission Date: 20240716
  Serious: No
  Sender: FDA-Public Use
  Company Number: US-PFIZER INC-202400081922

PATIENT
  Age: 63 Year
  Sex: Female

DRUGS (32)
  1. XELJANZ [Suspect]
     Active Substance: TOFACITINIB CITRATE
     Dosage: 5 MG, 2X/DAY
     Route: 048
     Dates: start: 2021
  2. AMPHETAMINE [Concomitant]
     Active Substance: AMPHETAMINE
  3. DEXTROAMPHETAMINE HYDROCHLORIDE [Concomitant]
     Active Substance: DEXTROAMPHETAMINE HYDROCHLORIDE
  4. GLUCOSAMINE + CHONDROITIN [CHONDROITIN SULFATE SODIUM;GLUCOSAMINE SULF [Concomitant]
  5. TRIAZOLAM [Concomitant]
     Active Substance: TRIAZOLAM
  6. AMITRIPTYLINE HCL ALPHARMA [Concomitant]
  7. DEPAKOTE ER [Concomitant]
     Active Substance: DIVALPROEX SODIUM
  8. METHOTREXATE [Concomitant]
     Active Substance: METHOTREXATE
  9. ALENDRONATE SODIUM [Concomitant]
     Active Substance: ALENDRONATE SODIUM
  10. ORACEA [DOXYCYCLINE HYCLATE] [Concomitant]
  11. RISPERIDONE [Concomitant]
     Active Substance: RISPERIDONE
  12. GABAPENTIN [Concomitant]
     Active Substance: GABAPENTIN
  13. BIOTIN [Concomitant]
     Active Substance: BIOTIN
  14. CITALOPRAM [Concomitant]
     Active Substance: CITALOPRAM\CITALOPRAM HYDROBROMIDE
  15. DICYCLOMINE [Concomitant]
     Active Substance: DICYCLOMINE HYDROCHLORIDE
  16. SIMVASTATIN [Concomitant]
     Active Substance: SIMVASTATIN
  17. PILOCARPINE HYDROCHLORIDE [Concomitant]
     Active Substance: PILOCARPINE HYDROCHLORIDE
  18. DIFLUCAN [Concomitant]
     Active Substance: FLUCONAZOLE
  19. CARVEDILOL [Concomitant]
     Active Substance: CARVEDILOL
  20. XANAX [Concomitant]
     Active Substance: ALPRAZOLAM
  21. HYDROCHLOROTHIAZIDE [Concomitant]
     Active Substance: HYDROCHLOROTHIAZIDE
  22. PRISTIQ EXTENDED-RELEASE [Concomitant]
     Active Substance: DESVENLAFAXINE SUCCINATE
  23. PROGESTERONE [Concomitant]
     Active Substance: PROGESTERONE
  24. ADDERALL [Concomitant]
     Active Substance: AMPHETAMINE ASPARTATE\AMPHETAMINE SULFATE\DEXTROAMPHETAMINE SACCHARATE\DEXTROAMPHETAMINE SULFATE
  25. ALLI [Concomitant]
     Active Substance: ORLISTAT
  26. ARMOUR THYROID [Concomitant]
     Active Substance: THYROID, PORCINE
  27. HYDROXYCHLOROQUINE [Concomitant]
     Active Substance: HYDROXYCHLOROQUINE
  28. NEXIUM [Concomitant]
     Active Substance: ESOMEPRAZOLE MAGNESIUM
  29. TRAZODONE [Concomitant]
     Active Substance: TRAZODONE HYDROCHLORIDE
  30. JANUMET [Concomitant]
     Active Substance: METFORMIN HYDROCHLORIDE\SITAGLIPTIN PHOSPHATE
  31. SAVELLA [Concomitant]
     Active Substance: MILNACIPRAN HYDROCHLORIDE
  32. HYDROCODONE BITART. AND HOMATROPINE METHYLBR. [Concomitant]

REACTIONS (2)
  - Headache [Not Recovered/Not Resolved]
  - Product dose omission in error [Unknown]

NARRATIVE: CASE EVENT DATE: 20240401
